FAERS Safety Report 4298960-5 (Version None)
Quarter: 2004Q1

REPORT INFORMATION
  Report Type: 
  Country: None (occurrence: None)
  Receive Date: 20040219
  Receipt Date: 20040206
  Transmission Date: 20041129
  Serious: Yes (Hospitalization)
  Sender: FDA-Public Use
  Company Number: PHBS2004BR01830

PATIENT
  Age: 59 Year
  Sex: Female
  Weight: 58 kg

DRUGS (8)
  1. TEGRETOL [Suspect]
     Indication: ANXIETY
     Dosage: 1.5 TABLET/DAY
     Route: 048
     Dates: start: 20031201, end: 20040131
  2. TEGRETOL [Suspect]
     Dosage: 0.5 TABLET
     Route: 048
     Dates: start: 20040210, end: 20040210
  3. TEGRETOL [Suspect]
     Dosage: 1 TABLET
     Route: 048
     Dates: start: 20040211
  4. DICLOFENAC [Suspect]
     Indication: INFLAMMATION
     Dosage: 1 TABLET, TID
     Route: 048
  5. NEULEPTIL [Concomitant]
     Indication: ANALGESIC EFFECT
     Dosage: 4 DROPS/DAY
     Route: 048
     Dates: start: 20031201, end: 20040131
  6. NEULEPTIL [Concomitant]
     Dosage: 4 DROPS/DAY
     Route: 048
     Dates: start: 20040202
  7. CHEMOTHERAPEUTICS,OTHER [Concomitant]
     Indication: CARCINOMA
  8. RADIOTHERAPY [Concomitant]
     Indication: CARCINOMA

REACTIONS (10)
  - ANAL CANCER RECURRENT [None]
  - BLOOD PRESSURE DECREASED [None]
  - BLOOD PRESSURE DIASTOLIC DECREASED [None]
  - DIZZINESS [None]
  - DRY MOUTH [None]
  - HAEMORRHAGE [None]
  - NAUSEA [None]
  - PYREXIA [None]
  - VOMITING [None]
  - VULVAL CANCER [None]
